FAERS Safety Report 5371819-8 (Version None)
Quarter: 2007Q2

REPORT INFORMATION
  Report Type: 
  Country: None (occurrence: None)
  Receive Date: 20070627
  Receipt Date: 20070622
  Transmission Date: 20071010
  Serious: Yes (Death, Life-Threatening)
  Sender: FDA-Public Use
  Company Number: FR-AVENTIS-200711938FR

PATIENT
  Age: 79 Year
  Sex: Male
  Weight: 78 kg

DRUGS (12)
  1. RIFADIN [Suspect]
     Route: 048
     Dates: start: 20070327, end: 20070405
  2. TARGOCID [Suspect]
     Route: 042
     Dates: start: 20070403
  3. FUCIDINE                           /00065702/ [Suspect]
     Route: 048
     Dates: start: 20070329, end: 20070403
  4. BACTRIM DS [Suspect]
     Route: 048
     Dates: start: 20070315, end: 20070327
  5. VANCOMYCIN [Suspect]
     Dates: start: 20070327, end: 20070329
  6. LOVENOX [Concomitant]
     Indication: DRUG USE FOR UNKNOWN INDICATION
  7. AMIODARONE [Concomitant]
     Indication: DRUG USE FOR UNKNOWN INDICATION
     Route: 048
  8. MEMANTINE HCL [Concomitant]
     Indication: DRUG USE FOR UNKNOWN INDICATION
     Route: 048
  9. AMLODIPINE [Concomitant]
     Indication: DRUG USE FOR UNKNOWN INDICATION
     Route: 048
  10. TEMESTA                            /00273201/ [Concomitant]
     Indication: DRUG USE FOR UNKNOWN INDICATION
     Route: 048
  11. DAFALGAN                           /00020001/ [Concomitant]
     Indication: DRUG USE FOR UNKNOWN INDICATION
     Route: 048
  12. AUGMENTIN                          /00756801/ [Concomitant]

REACTIONS (5)
  - BLOOD BILIRUBIN INCREASED [None]
  - BLOOD CREATININE INCREASED [None]
  - CONDITION AGGRAVATED [None]
  - JAUNDICE [None]
  - RENAL FAILURE [None]
